FAERS Safety Report 25406873 (Version 1)
Quarter: 2025Q2

REPORT INFORMATION
  Report Type: Spontaneous
  Country: US (occurrence: US)
  Receive Date: 20250606
  Receipt Date: 20250606
  Transmission Date: 20250717
  Serious: Yes (Hospitalization, Other)
  Sender: FRESENIUS KABI
  Company Number: US-FreseniusKabi-FK202507642

PATIENT
  Age: 64 Year
  Sex: Male
  Weight: 99.9 kg

DRUGS (6)
  1. FLUOROURACIL [Suspect]
     Active Substance: FLUOROURACIL
     Indication: Bile duct cancer
     Dates: start: 20250320, end: 20250419
  2. LEUCOVORIN CALCIUM [Suspect]
     Active Substance: LEUCOVORIN CALCIUM
     Indication: Bile duct cancer
     Dates: start: 20250320, end: 20250417
  3. BINIMETINIB [Suspect]
     Active Substance: BINIMETINIB
     Indication: Bile duct cancer
     Route: 048
     Dates: start: 20250320, end: 20250504
  4. ELOXATIN [Suspect]
     Active Substance: OXALIPLATIN
     Indication: Bile duct cancer
     Dates: start: 20250320, end: 20250417
  5. CEFEPIME [Concomitant]
     Active Substance: CEFEPIME HYDROCHLORIDE
     Indication: Product used for unknown indication
  6. DOXYCYCLINE [Concomitant]
     Active Substance: DOXYCYCLINE
     Indication: Product used for unknown indication

REACTIONS (2)
  - Muscular weakness [Unknown]
  - Colitis [Unknown]

NARRATIVE: CASE EVENT DATE: 20250504
